FAERS Safety Report 7236184-X (Version None)
Quarter: 2011Q1

REPORT INFORMATION
  Report Type: 
  Country: None (occurrence: None)
  Receive Date: 20110120
  Receipt Date: 20110113
  Transmission Date: 20110831
  Serious: Yes (Hospitalization)
  Sender: FDA-Public Use
  Company Number: JP-PFIZER INC-2010174060

PATIENT
  Age: 57 Year
  Sex: Male

DRUGS (7)
  1. FLURBIPROFEN [Concomitant]
     Indication: ANALGESIC THERAPY
     Dosage: 150 MG/DAY
     Route: 042
     Dates: start: 20101130
  2. OMEPRAL [Concomitant]
     Dosage: 20 MG/DAY
     Route: 042
     Dates: start: 20101208
  3. MAGNESIUM SULFATE [Concomitant]
     Dosage: UNK
     Route: 048
     Dates: start: 20101213
  4. MORPHINE HYDROCHLORIDE [Concomitant]
     Indication: ANALGESIC THERAPY
     Dosage: 144 MG/DAY
     Route: 058
     Dates: start: 20101130
  5. PANTOSIN [Concomitant]
     Indication: METABOLIC ABNORMALITY MANAGEMENT
     Dosage: 200 MG/DAY
     Route: 041
     Dates: start: 20101207
  6. LYRICA [Suspect]
     Dosage: 75 MG/DAY
     Route: 048
     Dates: start: 20101215, end: 20101216
  7. BETAMETHASONE [Concomitant]
     Indication: INFLAMMATION
     Dosage: 2 MG/DAY
     Route: 042
     Dates: start: 20101208

REACTIONS (1)
  - CONVULSION [None]
